FAERS Safety Report 23916553 (Version 2)
Quarter: 2024Q2

REPORT INFORMATION
  Report Type: Spontaneous
  Country: AR (occurrence: AR)
  Receive Date: 20240529
  Receipt Date: 20240607
  Transmission Date: 20240716
  Serious: Yes (Hospitalization, Other)
  Sender: FDA-Public Use
  Company Number: AR-BAYER-2024A072501

PATIENT
  Age: 34 Year
  Sex: Female

DRUGS (1)
  1. MIRENA [Suspect]
     Active Substance: LEVONORGESTREL
     Dosage: 20?G/DAY
     Route: 015
     Dates: start: 20221026

REACTIONS (9)
  - Haemoperitoneum [None]
  - Acute abdomen [None]
  - Ruptured ectopic pregnancy [Recovered/Resolved]
  - Ectopic pregnancy with contraceptive device [Recovered/Resolved]
  - Anaemia [None]
  - Vaginal haemorrhage [None]
  - Abdominal discomfort [Not Recovered/Not Resolved]
  - Flatulence [None]
  - Drug ineffective [None]

NARRATIVE: CASE EVENT DATE: 20240301
